FAERS Safety Report 6981906-6 (Version None)
Quarter: 2010Q3

REPORT INFORMATION
  Report Type: 
  Country: None (occurrence: None)
  Receive Date: 20100914
  Receipt Date: 20091028
  Transmission Date: 20110219
  Serious: No
  Sender: FDA-Public Use
  Company Number: US-PFIZER INC-2009290654

PATIENT

DRUGS (1)
  1. LYRICA [Suspect]
     Dosage: 300 MG/DAY

REACTIONS (4)
  - ANXIETY [None]
  - INSOMNIA [None]
  - NAUSEA [None]
  - NIGHT SWEATS [None]
